FAERS Safety Report 5939637-7 (Version None)
Quarter: 2008Q4

REPORT INFORMATION
  Report Type: 
  Country: None (occurrence: None)
  Receive Date: 20081030
  Receipt Date: 20081030
  Transmission Date: 20090506
  Serious: Yes (Other)
  Sender: FDA-Public Use
  Company Number: None

PATIENT
  Age: 69 Year
  Sex: Female
  Weight: 100.2449 kg

DRUGS (1)
  1. TEKTURNA [Suspect]
     Indication: HYPERTENSION
     Dosage: 300MG ONE DAILY PO
     Route: 048
     Dates: start: 20080619, end: 20080909

REACTIONS (3)
  - ANXIETY [None]
  - DYSPHORIA [None]
  - IRRITABILITY [None]
